FAERS Safety Report 19443857 (Version 1)
Quarter: 2021Q2

REPORT INFORMATION
  Report Type: Report from Study
  Country: CA (occurrence: CA)
  Receive Date: 20210621
  Receipt Date: 20210621
  Transmission Date: 20210717
  Serious: Yes (Other)
  Sender: FDA-Public Use
  Company Number: CA-JNJFOC-20200122819

PATIENT
  Age: 31 Year
  Sex: Female
  Weight: 88 kg

DRUGS (1)
  1. REMICADE [Suspect]
     Active Substance: INFLIXIMAB
     Indication: CROHN^S DISEASE
     Dosage: ON 09?JUN?2021, THE PATIENT RECEIVED 54TH 600 MG INFLIXIMAB, INFUSION.
     Route: 042
     Dates: start: 20140724

REACTIONS (4)
  - Off label use [Unknown]
  - Product use issue [Unknown]
  - Inappropriate schedule of product administration [Unknown]
  - Pneumonia respiratory syncytial viral [Not Recovered/Not Resolved]

NARRATIVE: CASE EVENT DATE: 20140724
